FAERS Safety Report 4712994-5 (Version None)
Quarter: 2005Q3

REPORT INFORMATION
  Report Type: 
  Country: None (occurrence: None)
  Receive Date: 20050711
  Receipt Date: 20050616
  Transmission Date: 20060218
  Serious: No
  Sender: FDA-Public Use
  Company Number: 11638

PATIENT
  Age: 65 Year
  Sex: Male

DRUGS (4)
  1. AMIODARONE [Suspect]
     Indication: SUPRAVENTRICULAR TACHYCARDIA
     Dosage: 300 MG ONCE IV
     Route: 042
     Dates: start: 19920829
  2. DIGOXIN [Concomitant]
  3. MEXILETINE HCL [Concomitant]
  4. DIURETICS [Concomitant]

REACTIONS (10)
  - BLOOD CREATININE INCREASED [None]
  - CHOLESTASIS [None]
  - DRUG TOXICITY [None]
  - DYSPEPSIA [None]
  - FIBRIN DEGRADATION PRODUCTS INCREASED [None]
  - HEPATITIS ACUTE [None]
  - HEPATOMEGALY [None]
  - NEUTROPHIL COUNT INCREASED [None]
  - PROTHROMBIN TIME PROLONGED [None]
  - THROMBOCYTOPENIA [None]
